FAERS Safety Report 4322100-7 (Version None)
Quarter: 2004Q1

REPORT INFORMATION
  Report Type: 
  Country: None (occurrence: None)
  Receive Date: 20040323
  Receipt Date: 20040310
  Transmission Date: 20041129
  Serious: Yes (Other)
  Sender: FDA-Public Use
  Company Number: NZ-GLAXOSMITHKLINE-B0326198A

PATIENT
  Age: 58 Year
  Sex: Male

DRUGS (5)
  1. DILATREND [Suspect]
     Route: 065
  2. ASPIRIN [Concomitant]
  3. FUROSEMIDE [Concomitant]
  4. QUINAPRIL HCL [Concomitant]
     Route: 065
  5. ALDACTONE [Concomitant]

REACTIONS (6)
  - ANAEMIA [None]
  - PSORIASIS [None]
  - RED BLOOD CELL SEDIMENTATION RATE INCREASED [None]
  - RENAL FAILURE [None]
  - RENAL IMPAIRMENT [None]
  - SKIN LESION [None]
